FAERS Safety Report 4753620-9 (Version None)
Quarter: 2005Q3

REPORT INFORMATION
  Report Type: 
  Country: None (occurrence: None)
  Receive Date: 20050826
  Receipt Date: 20050822
  Transmission Date: 20060218
  Serious: Yes (Other)
  Sender: FDA-Public Use
  Company Number: JP-JNJFOC-20050801805

PATIENT
  Sex: Male

DRUGS (10)
  1. CRAVIT [Suspect]
     Indication: TRACHEOSTOMY
     Route: 048
     Dates: start: 20050729, end: 20050805
  2. CRAVIT [Suspect]
     Indication: EMPHYSEMA
     Route: 048
     Dates: start: 20050729, end: 20050805
  3. LOXONIN [Interacting]
     Indication: PANCREATIC CARCINOMA
     Route: 048
     Dates: start: 20050401
  4. FLIVAS [Concomitant]
     Route: 048
     Dates: start: 20050401
  5. ADALAT [Concomitant]
     Indication: HYPERTENSION
     Route: 048
     Dates: start: 20050401
  6. PANTOSIN [Concomitant]
     Indication: PANCREATIC CARCINOMA
     Route: 048
     Dates: start: 20050401
  7. TAKEPRON [Concomitant]
     Indication: PANCREATIC CARCINOMA
     Route: 048
     Dates: start: 20050401
  8. UBRETID [Concomitant]
     Route: 048
     Dates: start: 20050401
  9. URSODIOL [Concomitant]
     Indication: PANCREATIC CARCINOMA
     Route: 048
     Dates: start: 20050401
  10. AMOBAN [Concomitant]
     Route: 048
     Dates: start: 20050401

REACTIONS (3)
  - CONVULSION [None]
  - DRUG INTERACTION [None]
  - DYSKINESIA [None]
